FAERS Safety Report 13064666 (Version 1)
Quarter: 2016Q4

REPORT INFORMATION
  Report Type: Spontaneous
  Country: US (occurrence: US)
  Receive Date: 20161227
  Receipt Date: 20161227
  Transmission Date: 20170207
  Serious: No
  Sender: FDA-Public Use
  Company Number: US-BAYER-2016-244169

PATIENT
  Age: 3 Year

DRUGS (1)
  1. CLARITIN [Suspect]
     Active Substance: LORATADINE
     Dosage: A QUARTER OF A TEASPOON
     Route: 048

REACTIONS (2)
  - Pyrexia [Unknown]
  - Product use issue [Unknown]
